FAERS Safety Report 14627593 (Version 3)
Quarter: 2018Q2

REPORT INFORMATION
  Report Type: Report from Study
  Country: US (occurrence: US)
  Receive Date: 20180312
  Receipt Date: 20180402
  Transmission Date: 20180711
  Serious: Yes (Hospitalization)
  Sender: FDA-Public Use
  Company Number: US-SHIRE-US201808412

PATIENT
  Sex: Female
  Weight: 46.5 kg

DRUGS (30)
  1. RITUXIMAB. [Concomitant]
     Active Substance: RITUXIMAB
     Indication: ACQUIRED HAEMOPHILIA
  2. POTASSIUM PHOSPHATE                /00493501/ [Concomitant]
     Active Substance: POTASSIUM PHOSPHATE, DIBASIC
     Indication: HYPOKALAEMIA
  3. PHYTONADIONE. [Concomitant]
     Active Substance: PHYTONADIONE
     Indication: COAGULOPATHY
  4. IPRATROPIUM BROMIDE AND ALBUTEROL SULFATE [Concomitant]
     Active Substance: ALBUTEROL SULFATE\IPRATROPIUM BROMIDE
     Indication: WHEEZING
  5. BISCODYL [Concomitant]
     Active Substance: BISACODYL
     Indication: CONSTIPATION
  6. LORAZEPAM. [Concomitant]
     Active Substance: LORAZEPAM
     Indication: ANXIETY
  7. SENOKOT [Concomitant]
     Active Substance: SENNOSIDES
     Indication: CONSTIPATION
  8. DAPTOMYCIN. [Concomitant]
     Active Substance: DAPTOMYCIN
     Indication: BACTERAEMIA
  9. DILAUDID [Concomitant]
     Active Substance: HYDROMORPHONE HYDROCHLORIDE
     Indication: PAIN
  10. SOLU-MEDROL [Concomitant]
     Active Substance: METHYLPREDNISOLONE SODIUM SUCCINATE
     Indication: PRODUCT USED FOR UNKNOWN INDICATION
  11. PREDNISOLONE. [Concomitant]
     Active Substance: PREDNISOLONE
     Indication: PRODUCT USED FOR UNKNOWN INDICATION
  12. HYDROMORPHONE [Concomitant]
     Active Substance: HYDROMORPHONE
     Indication: PRODUCT USED FOR UNKNOWN INDICATION
  13. FUROSEMIDE. [Concomitant]
     Active Substance: FUROSEMIDE
     Indication: PROPHYLAXIS
  14. OXYCODONE [Concomitant]
     Active Substance: OXYCODONE
     Indication: PAIN
  15. POTASSIUM CHLORIDE. [Concomitant]
     Active Substance: POTASSIUM CHLORIDE
     Indication: HYPOKALAEMIA
  16. PROCHLORPERAZINE. [Concomitant]
     Active Substance: PROCHLORPERAZINE
     Indication: NAUSEA
  17. BELLADONA POROUS PLASTER ON RED FLANNELETTE [Concomitant]
     Indication: PAIN
  18. CIPROFLOXACIN. [Concomitant]
     Active Substance: CIPROFLOXACIN
     Indication: PROPHYLAXIS
  19. CYCLOPHOSPHAMIDE. [Concomitant]
     Active Substance: CYCLOPHOSPHAMIDE
     Indication: ACQUIRED HAEMOPHILIA
  20. HYOSCYAMINE. [Concomitant]
     Active Substance: HYOSCYAMINE
     Indication: CONSTIPATION
  21. NOVOSEVEN [Concomitant]
     Active Substance: COAGULATION FACTOR VIIA RECOMBINANT HUMAN
     Indication: ACQUIRED HAEMOPHILIA
  22. VANCOMYCIN [Concomitant]
     Active Substance: VANCOMYCIN
     Indication: BACTERAEMIA
  23. COAGULATION FACTOR VIII (PORCINE, RECOMBINANT) [Suspect]
     Active Substance: ANTIHEMOPHILIC FACTOR PORCINE, B-DOMAIN TRUNCATED RECOMBINANT
     Indication: NEOPLASM
     Dosage: UNK
     Route: 065
     Dates: start: 20180119
  24. ONDANSETRON ACTAVIS [Concomitant]
     Active Substance: ONDANSETRON
     Indication: NAUSEA
  25. HYDROMORPHONE [Concomitant]
     Active Substance: HYDROMORPHONE
     Indication: BREAKTHROUGH PAIN
  26. PANTOPRAZOLE [Concomitant]
     Active Substance: PANTOPRAZOLE
     Indication: PROPHYLAXIS
  27. CEFUROXIME. [Concomitant]
     Active Substance: CEFUROXIME
     Indication: BACTERAEMIA
  28. METRONIDAZOLE. [Concomitant]
     Active Substance: METRONIDAZOLE
     Indication: ABSCESS
  29. CEFEPIME [Concomitant]
     Active Substance: CEFEPIME HYDROCHLORIDE
     Indication: INFECTION
  30. MEPERIDINE                         /00016301/ [Concomitant]
     Active Substance: MEPERIDINE
     Indication: CHILLS

REACTIONS (3)
  - Oxygen saturation decreased [Not Recovered/Not Resolved]
  - Bacteraemia [Not Recovered/Not Resolved]
  - Hypoxia [Not Recovered/Not Resolved]

NARRATIVE: CASE EVENT DATE: 201802
